FAERS Safety Report 24943447 (Version 2)
Quarter: 2025Q2

REPORT INFORMATION
  Report Type: Spontaneous
  Country: CH (occurrence: CH)
  Receive Date: 20250207
  Receipt Date: 20250513
  Transmission Date: 20250717
  Serious: No
  Sender: AMGEN
  Company Number: CH-AMGEN-CHESP2025021431

PATIENT
  Sex: Male

DRUGS (1)
  1. BLINCYTO [Suspect]
     Active Substance: BLINATUMOMAB
     Indication: Product used for unknown indication
     Route: 065

REACTIONS (5)
  - Pleocytosis [Unknown]
  - Agitation [Unknown]
  - Restlessness [Unknown]
  - Insomnia [Unknown]
  - Disturbance in attention [Unknown]
